FAERS Safety Report 9917754 (Version 1)
Quarter: 2014Q1

REPORT INFORMATION
  Report Type: Report from Study
  Country: US (occurrence: US)
  Receive Date: 20140221
  Receipt Date: 20140221
  Transmission Date: 20141002
  Serious: Yes (Other)
  Sender: FDA-Public Use
  Company Number: US-EXELIXIS-XL18414004011

PATIENT
  Age: 70 Year
  Sex: Female
  Weight: 67.5 kg

DRUGS (10)
  1. XL184 [Suspect]
     Indication: NEUROENDOCRINE CARCINOMA OF THE SKIN
     Dosage: 60 MG, QD
     Route: 048
     Dates: start: 20140211, end: 20140211
  2. ASPIRIN [Concomitant]
  3. DESONIDE [Concomitant]
  4. IBUPROFEN [Concomitant]
  5. EMLA [Concomitant]
  6. LISINOPRIL [Concomitant]
  7. MAALOX/BEN/LIDO [Concomitant]
  8. METOCLOPRAMIDE HCL [Concomitant]
  9. ONDANSETRON HCL [Concomitant]
  10. SIMVASTATIN [Concomitant]

REACTIONS (2)
  - Headache [Recovered/Resolved]
  - Vision blurred [Recovered/Resolved]
